FAERS Safety Report 5133150-5 (Version None)
Quarter: 2006Q4

REPORT INFORMATION
  Report Type: 
  Country: None (occurrence: None)
  Receive Date: 20061018
  Receipt Date: 20061003
  Transmission Date: 20070319
  Serious: Yes (Other)
  Sender: FDA-Public Use
  Company Number: 2006BH013760

PATIENT
  Age: 29 Year
  Sex: Male
  Weight: 63 kg

DRUGS (1)
  1. EXTRANEAL [Suspect]
     Indication: DRUG USE FOR UNKNOWN INDICATION
     Dosage: IP
     Route: 033
     Dates: start: 20060922, end: 20061002

REACTIONS (6)
  - ABDOMINAL PAIN UPPER [None]
  - DIARRHOEA [None]
  - NAUSEA [None]
  - PERITONEAL EFFUSION [None]
  - PYREXIA [None]
  - WHITE BLOOD CELL COUNT DECREASED [None]
